FAERS Safety Report 6165713-2 (Version None)
Quarter: 2009Q2

REPORT INFORMATION
  Report Type: 
  Country: None (occurrence: None)
  Receive Date: 20090423
  Receipt Date: 20090416
  Transmission Date: 20091009
  Serious: Yes (Hospitalization, Congenital Anomaly, Other)
  Sender: FDA-Public Use
  Company Number: DE-WYE-G01994608

PATIENT
  Sex: Female

DRUGS (3)
  1. TREVILOR [Suspect]
     Indication: DEPRESSION
     Route: 064
  2. INSULIN [Concomitant]
     Indication: TYPE 1 DIABETES MELLITUS
  3. TRAZODONE [Concomitant]
     Indication: DEPRESSION
     Route: 064

REACTIONS (18)
  - AGITATION NEONATAL [None]
  - ATRIAL SEPTAL DEFECT [None]
  - BLOOD CALCIUM DECREASED [None]
  - CARDIOMYOPATHY NEONATAL [None]
  - CONVULSION NEONATAL [None]
  - DRUG EXPOSURE DURING PREGNANCY [None]
  - DRUG WITHDRAWAL SYNDROME NEONATAL [None]
  - HYPOGLYCAEMIA NEONATAL [None]
  - HYPOMAGNESAEMIA [None]
  - HYPOTONIA NEONATAL [None]
  - MATERNAL CONDITION AFFECTING FOETUS [None]
  - MICROCEPHALY [None]
  - NEONATAL RESPIRATORY DISTRESS SYNDROME [None]
  - NEONATAL TACHYCARDIA [None]
  - PATENT DUCTUS ARTERIOSUS [None]
  - PREMATURE BABY [None]
  - TRANSVERSE PRESENTATION [None]
  - VENTRICULAR SEPTAL DEFECT [None]
